FAERS Safety Report 8553523-8 (Version None)
Quarter: 2012Q3

REPORT INFORMATION
  Report Type: 
  Country: None (occurrence: None)
  Receive Date: 20120731
  Receipt Date: 20120716
  Transmission Date: 20120928
  Serious: Yes (Hospitalization)
  Sender: FDA-Public Use
  Company Number: SE-AMGEN-US190596

PATIENT
  Age: 73 Year
  Sex: Female

DRUGS (4)
  1. PREDNISOLONE [Concomitant]
     Dosage: 3.75 MG, QD
     Route: 048
  2. ACETYLCYSTEINE [Concomitant]
     Dosage: 200 MG, BID
  3. ACETAMINOPHEN [Concomitant]
     Dosage: 500 MG, BID
  4. ETANERCEPT [Suspect]
     Indication: RHEUMATOID ARTHRITIS
     Dosage: 25 MG, 2 TIMES/WK
     Route: 058
     Dates: start: 20040617

REACTIONS (1)
  - ATRIAL FIBRILLATION [None]
